FAERS Safety Report 4361158-6 (Version None)
Quarter: 2004Q2

REPORT INFORMATION
  Report Type: 
  Country: None (occurrence: None)
  Receive Date: 20040511
  Receipt Date: 20030506
  Transmission Date: 20050107
  Serious: Yes (Other)
  Sender: FDA-Public Use
  Company Number: 03-143-0151

PATIENT
  Age: 60 Year
  Sex: Male
  Weight: 74.8435 kg

DRUGS (5)
  1. LEUCOVORIN CALCIUM [Suspect]
     Indication: COLON CANCER
     Dosage: 900 MG IV/WEEK
     Route: 042
     Dates: start: 20030414
  2. FLUOROURACIL [Concomitant]
  3. PREVACID [Concomitant]
  4. XANAX [Concomitant]
  5. DARVOCET [Concomitant]

REACTIONS (2)
  - INJECTION SITE PAIN [None]
  - PALLOR [None]
